FAERS Safety Report 5075604-6 (Version None)
Quarter: 2006Q3

REPORT INFORMATION
  Report Type: 
  Country: None (occurrence: None)
  Receive Date: 20060807
  Receipt Date: 20060807
  Transmission Date: 20061208
  Serious: Yes (Other)
  Sender: FDA-Public Use
  Company Number: None

PATIENT

DRUGS (1)
  1. HEPARIN SODIUM [Suspect]
     Dosage: VARIOUS   IV
     Route: 042
     Dates: start: 20060801, end: 20060804

REACTIONS (2)
  - CARDIAC PROCEDURE COMPLICATION [None]
  - PHARMACEUTICAL PRODUCT COMPLAINT [None]
